FAERS Safety Report 26101457 (Version 1)
Quarter: 2025Q4

REPORT INFORMATION
  Report Type: Spontaneous
  Country: TH (occurrence: TH)
  Receive Date: 20251128
  Receipt Date: 20251128
  Transmission Date: 20260117
  Serious: Yes (Other)
  Sender: BRISTOL-MYERS SQUIBB COMPANY
  Company Number: TH-IPSEN Group, Research and Development-2024-06668

PATIENT
  Age: 54 Year
  Sex: Female

DRUGS (8)
  1. NIVOLUMAB [Suspect]
     Active Substance: NIVOLUMAB
     Indication: Renal cell carcinoma
     Dosage: IV INFUSION
     Route: 042
  2. CABOMETYX [Suspect]
     Active Substance: CABOZANTINIB S-MALATE
     Indication: Renal cell carcinoma
     Dosage: EVERY OTHER DAY
     Route: 048
     Dates: start: 202503
  3. CABOMETYX [Suspect]
     Active Substance: CABOZANTINIB S-MALATE
     Dosage: ONCE A WEEK, EVERY THURSDAY
     Route: 048
  4. CABOMETYX [Suspect]
     Active Substance: CABOZANTINIB S-MALATE
     Dosage: 40 MG TWICE WEEKLY, EVERY MONDAY AND THURSDAY
     Route: 048
     Dates: start: 20241023
  5. CABOMETYX [Suspect]
     Active Substance: CABOZANTINIB S-MALATE
     Dosage: 40 MG, QD
     Route: 048
     Dates: start: 20240126
  6. CABOMETYX [Suspect]
     Active Substance: CABOZANTINIB S-MALATE
     Dosage: 40 MG TWICE A WEEK (EVERY MONDAY AND TUESDAY)
     Route: 048
     Dates: start: 202506
  7. CABOMETYX [Suspect]
     Active Substance: CABOZANTINIB S-MALATE
     Dosage: 40 MG TWICE A WEEK (EVERY MONDAY AND THURSDAY)
     Route: 048
     Dates: start: 202511
  8. CABOMETYX [Suspect]
     Active Substance: CABOZANTINIB S-MALATE
     Dosage: 40 MG TWICE WEEKLY, EVERY MONDAY AND THURSDAY
     Route: 048
     Dates: start: 20240125

REACTIONS (3)
  - Gait disturbance [Unknown]
  - Blister [Unknown]
  - Therapy interrupted [Unknown]
